FAERS Safety Report 17556696 (Version 1)
Quarter: 2020Q1

REPORT INFORMATION
  Report Type: Spontaneous
  Country: DE (occurrence: DE)
  Receive Date: 20200318
  Receipt Date: 20200318
  Transmission Date: 20200409
  Serious: Yes (Hospitalization)
  Sender: FDA-Public Use
  Company Number: DE-ASTRAZENECA-2020SE36408

PATIENT
  Age: 78 Year
  Sex: Female

DRUGS (7)
  1. PREDNISOLONE. [Concomitant]
     Active Substance: PREDNISOLONE
  2. SEVIKAR [Concomitant]
     Active Substance: AMLODIPINE BESYLATE\OLMESARTAN MEDOXOMIL
  3. ADENURIC [Suspect]
     Active Substance: FEBUXOSTAT
     Route: 065
  4. XELJANZ [Suspect]
     Active Substance: TOFACITINIB CITRATE
     Dosage: 5 MG, 1X/DAY
     Route: 065
     Dates: end: 20190928
  5. CATAPRESAN [Concomitant]
     Active Substance: CLONIDINE
  6. DOXAZOSIN [Concomitant]
     Active Substance: DOXAZOSIN MESYLATE
  7. ROSUVADOR [Suspect]
     Active Substance: ROSUVASTATIN CALCIUM
     Route: 048

REACTIONS (2)
  - Drug-induced liver injury [Not Recovered/Not Resolved]
  - Hepatic enzyme increased [Not Recovered/Not Resolved]

NARRATIVE: CASE EVENT DATE: 20190826
